FAERS Safety Report 4829139-3 (Version None)
Quarter: 2005Q4

REPORT INFORMATION
  Report Type: 
  Country: None (occurrence: None)
  Receive Date: 20051027
  Receipt Date: 20040901
  Transmission Date: 20060501
  Serious: Yes (Hospitalization)
  Sender: FDA-Public Use
  Company Number: USA-2004-0016693

PATIENT
  Age: 60 Year
  Sex: Female

DRUGS (1)
  1. SPECTRACEF [Suspect]
     Dosage: UNKNOWN
     Route: 065

REACTIONS (2)
  - ABDOMINAL DISCOMFORT [None]
  - CLOSTRIDIAL INFECTION [None]
